FAERS Safety Report 10554077 (Version 1)
Quarter: 2014Q4

REPORT INFORMATION
  Report Type: Spontaneous
  Country: US (occurrence: None)
  Receive Date: 20141029
  Receipt Date: 20141029
  Transmission Date: 20150529
  Serious: Yes (Other)
  Sender: FDA-Public Use
  Company Number: None

PATIENT
  Sex: Female

DRUGS (5)
  1. AVEENO BODY WASH UNSPECIFIED [Suspect]
     Active Substance: COSMETICS
     Indication: REMOVAL OF INERT MATTER FROM SKIN OR SUBCUTANEOUS TISSUE
     Route: 061
  2. AVEENO UNSPECIFIED LOTION [Suspect]
     Active Substance: COSMETICS
  3. AVEENO ULTRA-CALMING DAILY MOISTURIZER SPF15 [Suspect]
     Active Substance: AVOBENZONE\OCTINOXATE\OCTISALATE
  4. AVEENO BODY WASH UNSPECIFIED [Suspect]
     Active Substance: COSMETICS
     Route: 061
  5. AVEENO DAILY MOISTURIZING [Suspect]
     Active Substance: DIMETHICONE
     Indication: DRY SKIN PROPHYLAXIS
     Route: 061

REACTIONS (1)
  - Breast cancer [None]
